FAERS Safety Report 8300376-9 (Version None)
Quarter: 2012Q2

REPORT INFORMATION
  Report Type: 
  Country: None (occurrence: None)
  Receive Date: 20120417
  Receipt Date: 20120413
  Transmission Date: 20120825
  Serious: Yes (Hospitalization, Other)
  Sender: FDA-Public Use
  Company Number: ADR-2011-9866

PATIENT
  Sex: Male

DRUGS (1)
  1. LIORESAL [Suspect]
     Indication: MUSCLE SPASTICITY
     Dosage: 412 MCG, DAILY, INTRATH
     Route: 037

REACTIONS (10)
  - MUSCLE SPASTICITY [None]
  - DEVICE INFUSION ISSUE [None]
  - INJURY [None]
  - INSOMNIA [None]
  - TREMOR [None]
  - HYPERTONIA [None]
  - PUMP RESERVOIR ISSUE [None]
  - DRUG WITHDRAWAL SYNDROME [None]
  - CARDIOVASCULAR DISORDER [None]
  - MALAISE [None]
